FAERS Safety Report 5322062-X (Version None)
Quarter: 2007Q2

REPORT INFORMATION
  Report Type: 
  Country: None (occurrence: None)
  Receive Date: 20070507
  Receipt Date: 20070427
  Transmission Date: 20071010
  Serious: Yes (Hospitalization)
  Sender: FDA-Public Use
  Company Number: 6031070

PATIENT
  Age: 82 Year
  Sex: Female

DRUGS (8)
  1. LEVOTHYROXINE SODIUM [Suspect]
     Indication: THYROIDECTOMY
     Dosage: 200 MCG (200 MCG, 1 D)
     Route: 048
  2. DEPAMIDE (TABLET) (VALPROMIDE) [Concomitant]
  3. PREVISCAN (TABLET) (FLUINDIONE) [Concomitant]
  4. DAFALGAN (PARACETAMOL) [Concomitant]
  5. RISPERDAL [Concomitant]
  6. FOSAMAX [Concomitant]
  7. VITAMIN E [Concomitant]
  8. CACIT D3 (GRANULES FOR ORAL SUSPENSION) (COLECALCIFEROL, CALCIUM CARBO [Concomitant]

REACTIONS (14)
  - ACCIDENTAL OVERDOSE [None]
  - ACUTE PULMONARY OEDEMA [None]
  - ATRIAL FIBRILLATION [None]
  - BUNDLE BRANCH BLOCK RIGHT [None]
  - DISORIENTATION [None]
  - DRUG PRESCRIBING ERROR [None]
  - HEART RATE DECREASED [None]
  - HYPERTONIA [None]
  - HYPOVENTILATION [None]
  - MUSCLE SPASTICITY [None]
  - OEDEMA PERIPHERAL [None]
  - PULMONARY CONGESTION [None]
  - TACHYARRHYTHMIA [None]
  - TREMOR [None]
